FAERS Safety Report 5428564-X (Version None)
Quarter: 2007Q3

REPORT INFORMATION
  Report Type: 
  Country: None (occurrence: None)
  Receive Date: 20070824
  Receipt Date: 20070821
  Transmission Date: 20080115
  Serious: Yes (Disabling)
  Sender: FDA-Public Use
  Company Number: 2007SP015148

PATIENT
  Age: 57 Year
  Sex: Male

DRUGS (7)
  1. PEG-INTRON [Suspect]
     Indication: HEPATITIS C
     Dosage: 120 MCG;QW;SC
     Route: 058
     Dates: start: 20070313, end: 20070626
  2. REBETOL [Suspect]
     Indication: HEPATITIS C
     Dosage: 1400 MG;QD;PO : 1000 MG;QD;PO : 800 MG;QD;PO
     Route: 048
     Dates: start: 20070313, end: 20070325
  3. REBETOL [Suspect]
     Indication: HEPATITIS C
     Dosage: 1400 MG;QD;PO : 1000 MG;QD;PO : 800 MG;QD;PO
     Route: 048
     Dates: start: 20070326, end: 20070328
  4. REBETOL [Suspect]
     Indication: HEPATITIS C
     Dosage: 1400 MG;QD;PO : 1000 MG;QD;PO : 800 MG;QD;PO
     Route: 048
     Dates: start: 20070329, end: 20070626
  5. VICODIN [Concomitant]
  6. FOLIC ACID [Concomitant]
  7. ADVIL LIQUI-GELS [Concomitant]

REACTIONS (5)
  - ALANINE AMINOTRANSFERASE INCREASED [None]
  - ASPARTATE AMINOTRANSFERASE INCREASED [None]
  - FATIGUE [None]
  - JAUNDICE [None]
  - TREATMENT NONCOMPLIANCE [None]
